FAERS Safety Report 7590735-4 (Version None)
Quarter: 2011Q3

REPORT INFORMATION
  Report Type: 
  Country: None (occurrence: None)
  Receive Date: 20110705
  Receipt Date: 20110621
  Transmission Date: 20111222
  Serious: Yes (Hospitalization)
  Sender: FDA-Public Use
  Company Number: PHHY2011US34301

PATIENT
  Sex: Male
  Weight: 106.58 kg

DRUGS (6)
  1. SANDIMMUNE [Suspect]
     Indication: NEPHROTIC SYNDROME
  2. SIMVASTATIN [Concomitant]
     Indication: HYPERCHOLESTEROLAEMIA
     Dosage: 80 MG, UNK
     Route: 048
  3. PREDNISONE [Concomitant]
     Indication: NEPHROTIC SYNDROME
     Dosage: 5 MG, DAILY
     Route: 048
     Dates: start: 20110310
  4. DILTIAZEM [Concomitant]
     Indication: HYPERTENSION
     Dosage: 120 MG, BID
     Route: 048
     Dates: start: 20100311
  5. SANDIMMUNE [Suspect]
     Indication: RENAL FAILURE ACUTE
     Dosage: 125 MG
     Route: 048
     Dates: start: 20110309
  6. LISINOPRIL [Concomitant]
     Indication: HYPERTENSION
     Dosage: 10 MG, DAILY
     Route: 048
     Dates: start: 20110420

REACTIONS (3)
  - ABDOMINAL PAIN UPPER [None]
  - CHEST PAIN [None]
  - DIVERTICULITIS [None]
